FAERS Safety Report 5377407-1 (Version None)
Quarter: 2007Q3

REPORT INFORMATION
  Report Type: 
  Country: None (occurrence: None)
  Receive Date: 20070703
  Receipt Date: 20070626
  Transmission Date: 20080115
  Serious: Yes (Hospitalization)
  Sender: FDA-Public Use
  Company Number: B0428326A

PATIENT
  Age: 53 Year
  Sex: Female

DRUGS (6)
  1. REQUIP [Suspect]
     Indication: PARKINSON'S DISEASE
     Route: 048
     Dates: start: 20041101, end: 20060320
  2. SELEGILINE HCL [Suspect]
     Indication: PARKINSON'S DISEASE
     Dosage: 6MG PER DAY
     Route: 048
     Dates: start: 20031101
  3. MODOPAR [Suspect]
     Indication: PARKINSON'S DISEASE
     Dosage: 62.5MG SEE DOSAGE TEXT
     Route: 048
     Dates: start: 20041201
  4. PERGOLIDE MESYLATE [Suspect]
     Indication: PARKINSON'S DISEASE
     Route: 065
     Dates: start: 20030301, end: 20041101
  5. IXEL [Concomitant]
     Dosage: 1TAB TWICE PER DAY
     Route: 048
     Dates: start: 20050501
  6. MOTILIUM [Concomitant]
     Dosage: 3TAB PER DAY
     Route: 048
     Dates: start: 20051125

REACTIONS (9)
  - AGGRESSION [None]
  - ATRIAL FIBRILLATION [None]
  - CEREBRAL DISORDER [None]
  - DEPRESSION [None]
  - HYPERSEXUALITY [None]
  - NERVOUS SYSTEM DISORDER [None]
  - PATHOLOGICAL GAMBLING [None]
  - PERSONALITY CHANGE [None]
  - SUICIDE ATTEMPT [None]
